FAERS Safety Report 9633424 (Version 1)
Quarter: 2013Q4

REPORT INFORMATION
  Report Type: Spontaneous
  Country: US (occurrence: US)
  Receive Date: 20131021
  Receipt Date: 20131021
  Transmission Date: 20140711
  Serious: Yes (Other)
  Sender: FDA-Public Use
  Company Number: US-BRISTOL-MYERS SQUIBB COMPANY-19429877

PATIENT
  Sex: Male

DRUGS (2)
  1. YERVOY [Suspect]
  2. FLU VACCINE [Suspect]

REACTIONS (3)
  - Malignant neoplasm progression [Unknown]
  - Arthralgia [Unknown]
  - Abasia [Unknown]
